FAERS Safety Report 7134176-2 (Version None)
Quarter: 2010Q4

REPORT INFORMATION
  Report Type: 
  Country: None (occurrence: None)
  Receive Date: 20101203
  Receipt Date: 20101124
  Transmission Date: 20110411
  Serious: Yes (Other)
  Sender: FDA-Public Use
  Company Number: DE-ABBOTT-10P-062-0684762-00

PATIENT
  Age: 61 Year
  Sex: Male
  Weight: 74 kg

DRUGS (10)
  1. HUMIRA [Suspect]
     Indication: RHEUMATOID ARTHRITIS
     Route: 058
     Dates: end: 20100708
  2. ENALAPRIL MALEATE [Concomitant]
     Indication: HYPERTENSION
     Route: 048
     Dates: start: 20010518
  3. VIGANTOLLETEN 1000 [Concomitant]
     Indication: OSTEOPOROSIS
     Route: 048
     Dates: start: 20091208
  4. CELEBREX [Concomitant]
     Indication: RHEUMATOID ARTHRITIS
     Route: 048
     Dates: start: 20100818
  5. ALENDRON [Concomitant]
     Indication: OSTEOPOROSIS
     Route: 048
     Dates: start: 20090225
  6. FERROUS SULFATE TAB [Concomitant]
     Indication: IRON DEFICIENCY
     Route: 048
     Dates: start: 20100719
  7. PREDNIHEXAL [Concomitant]
     Indication: RHEUMATOID ARTHRITIS
     Route: 048
     Dates: start: 20050101
  8. AMPHOTERICIN B [Concomitant]
     Indication: ORAL CANDIDIASIS
     Dates: start: 20100701
  9. THEOPHYLLINE [Concomitant]
     Indication: CHRONIC OBSTRUCTIVE PULMONARY DISEASE
     Route: 048
     Dates: start: 20070101
  10. SPIRIVA [Concomitant]
     Indication: CHRONIC OBSTRUCTIVE PULMONARY DISEASE
     Route: 055
     Dates: start: 20070101

REACTIONS (2)
  - ANAEMIA [None]
  - PROTEINURIA [None]
